FAERS Safety Report 10168176 (Version 1)
Quarter: 2014Q2

REPORT INFORMATION
  Report Type: Spontaneous
  Country: US (occurrence: US)
  Receive Date: 20140512
  Receipt Date: 20140512
  Transmission Date: 20141212
  Serious: No
  Sender: FDA-Public Use
  Company Number: US-ASTRAZENECA-2013SE82105

PATIENT
  Age: 57 Year
  Sex: Female
  Weight: 77.1 kg

DRUGS (5)
  1. FASLODEX [Suspect]
     Indication: BREAST CANCER METASTATIC
     Route: 030
     Dates: start: 2011
  2. LEVOTHYROID [Concomitant]
     Indication: THYROID DISORDER
  3. EFFEXOR [Concomitant]
  4. ATARAX [Concomitant]
     Indication: PRURITUS
  5. IMIPRAMINE [Concomitant]
     Indication: NOCTURIA

REACTIONS (2)
  - Irritability [Not Recovered/Not Resolved]
  - Skin bacterial infection [Unknown]
